FAERS Safety Report 9554625 (Version 1)
Quarter: 2013Q3

REPORT INFORMATION
  Report Type: Report from Study
  Country: CA (occurrence: CA)
  Receive Date: 20130925
  Receipt Date: 20130925
  Transmission Date: 20140515
  Serious: Yes (Other)
  Sender: FDA-Public Use
  Company Number: CA-BAXTER-2013BAX036931

PATIENT
  Sex: 0

DRUGS (1)
  1. 20% OSMITROL (MANITOL IN WATER ) [Suspect]
     Indication: PROPHYLAXIS
     Dosage: 2 GM/KG

REACTIONS (1)
  - Cerebral disorder [Unknown]
